FAERS Safety Report 6654713-1 (Version None)
Quarter: 2010Q1

REPORT INFORMATION
  Report Type: 
  Country: None (occurrence: None)
  Receive Date: 20100326
  Receipt Date: 20100317
  Transmission Date: 20100710
  Serious: Yes (Other)
  Sender: FDA-Public Use
  Company Number: BR-ABBOTT-09P-020-0605215-00

PATIENT
  Sex: Female

DRUGS (6)
  1. HUMIRA [Suspect]
     Indication: RHEUMATOID ARTHRITIS
     Route: 058
     Dates: start: 20080101
  2. HUMIRA [Suspect]
     Route: 058
  3. PREDNISONE [Concomitant]
     Indication: RHEUMATOID ARTHRITIS
     Route: 048
  4. CALCIUM CARBONATE W/VITAMIN D [Concomitant]
     Indication: DRUG USE FOR UNKNOWN INDICATION
     Dosage: 600/400 MILLIGRAMS, ONE DAILY
     Route: 048
     Dates: start: 20090101
  5. TORLOS H [Concomitant]
     Indication: HYPERTENSION
     Dosage: 50/12.5 MILLIGRAMS, ONE DAILY
     Route: 048
     Dates: start: 20070101
  6. FOSAMAX [Concomitant]
     Indication: BONE DISORDER
     Route: 048
     Dates: start: 20090501

REACTIONS (4)
  - DIZZINESS [None]
  - FALL [None]
  - INFLUENZA [None]
  - LOWER LIMB FRACTURE [None]
